FAERS Safety Report 10231392 (Version 1)
Quarter: 2014Q2

REPORT INFORMATION
  Report Type: Spontaneous
  Country: US (occurrence: US)
  Receive Date: 20140611
  Receipt Date: 20140611
  Transmission Date: 20141212
  Serious: Yes (Other)
  Sender: FDA-Public Use
  Company Number: US-PFIZER INC-2014157419

PATIENT
  Sex: Female

DRUGS (1)
  1. PREMPRO [Suspect]
     Indication: HORMONE LEVEL ABNORMAL
     Dosage: UNK

REACTIONS (5)
  - Suicidal ideation [Unknown]
  - Depression [Unknown]
  - Anger [Unknown]
  - Personality change [Unknown]
  - Drug ineffective [Unknown]
